FAERS Safety Report 19745318 (Version 1)
Quarter: 2021Q3

REPORT INFORMATION
  Report Type: Spontaneous
  Country: FR (occurrence: FR)
  Receive Date: 20210825
  Receipt Date: 20210825
  Transmission Date: 20211014
  Serious: Yes (Other)
  Sender: FDA-Public Use
  Company Number: FR-MYLANLABS-2021M1054744

PATIENT
  Age: 84 Year
  Sex: Female

DRUGS (4)
  1. TEICOPLANIN [Suspect]
     Active Substance: TEICOPLANIN
     Indication: ARTHRITIS BACTERIAL
     Dosage: 800 MILLIGRAM (800 MG/12 H)
     Route: 042
     Dates: start: 20210519, end: 20210522
  2. ENOXAPARIN [Suspect]
     Active Substance: ENOXAPARIN
     Indication: PULMONARY EMBOLISM
     Dosage: UNK
     Route: 058
     Dates: start: 20210511
  3. LEVOFLOXACIN. [Suspect]
     Active Substance: LEVOFLOXACIN
     Indication: ARTHRITIS BACTERIAL
     Dosage: 500 MG X 2 PAR JOUR
     Route: 042
     Dates: start: 20210519, end: 20210524
  4. MIANSERIN [Suspect]
     Active Substance: MIANSERIN
     Indication: MAJOR DEPRESSION
     Dosage: UNK
     Route: 048
     Dates: start: 20210521, end: 20210525

REACTIONS (3)
  - Cholestasis [Recovering/Resolving]
  - Overdose [Not Recovered/Not Resolved]
  - Hepatic cytolysis [Recovering/Resolving]

NARRATIVE: CASE EVENT DATE: 20210522
